FAERS Safety Report 18159849 (Version 1)
Quarter: 2020Q3

REPORT INFORMATION
  Report Type: Spontaneous
  Country: US (occurrence: US)
  Receive Date: 20200818
  Receipt Date: 20200818
  Transmission Date: 20201103
  Serious: No
  Sender: FDA-Public Use
  Company Number: US-CELLTRION INC.-2020US023555

PATIENT

DRUGS (1)
  1. TRUXIMA [Suspect]
     Active Substance: RITUXIMAB-ABBS
     Indication: PEMPHIGOID
     Dosage: 375 MG/M2 EVERY WEEK X 4
     Route: 042
     Dates: start: 20200320

REACTIONS (1)
  - Off label use [Unknown]
